FAERS Safety Report 10794358 (Version 3)
Quarter: 2015Q1

REPORT INFORMATION
  Report Type: Report from Study
  Country: BE (occurrence: BE)
  Receive Date: 20150213
  Receipt Date: 20150310
  Transmission Date: 20150721
  Serious: Yes (Other)
  Sender: FDA-Public Use
  Company Number: BE-ABBVIE-15P-013-1341147-00

PATIENT
  Age: 68 Year
  Sex: Male

DRUGS (10)
  1. DUODOPA [Suspect]
     Active Substance: CARBIDOPA\LEVODOPA
     Indication: PARKINSON^S DISEASE
     Dosage: AM: 9ML, CD: 5.1 ML/H FOR 16HRS, ED: 3ML
     Route: 050
     Dates: start: 20150120, end: 20150129
  2. DUODOPA [Suspect]
     Active Substance: CARBIDOPA\LEVODOPA
     Dosage: AM = 9 ML, CD = 5 ML/H DURING 16H, ED = 3 ML
     Route: 050
     Dates: start: 20150213, end: 20150217
  3. AZILECT [Concomitant]
     Active Substance: RASAGILINE MESYLATE
     Indication: PARKINSON^S DISEASE
     Route: 048
  4. CITALOPRAM [Concomitant]
     Active Substance: CITALOPRAM HYDROBROMIDE
     Indication: PRODUCT USED FOR UNKNOWN INDICATION
  5. DUODOPA [Suspect]
     Active Substance: CARBIDOPA\LEVODOPA
     Dosage: AM 9ML, CD 5.5ML/HR DURING 16HRS, ED  3ML
     Route: 050
     Dates: start: 20150309
  6. PROLOPA HBS [Concomitant]
     Indication: PRODUCT USED FOR UNKNOWN INDICATION
     Dosage: FORM STRENGTH:100MG/25MG?UNIT DOSE=2
     Route: 048
  7. DUODOPA [Suspect]
     Active Substance: CARBIDOPA\LEVODOPA
     Dosage: AM: 9ML, CD: 5ML/H FOR 16HRS, ED: 3ML
     Route: 050
     Dates: start: 20150129, end: 20150202
  8. DUODOPA [Suspect]
     Active Substance: CARBIDOPA\LEVODOPA
     Dosage: AM: 9ML; CD: 5.2ML/H FOR 16HRS; ED: 3ML
     Route: 050
     Dates: start: 20150202, end: 20150210
  9. DUODOPA [Suspect]
     Active Substance: CARBIDOPA\LEVODOPA
     Dosage: AM = 9 ML, CD = 5.1 ML/H DURING 16H, ED = 3 ML
     Route: 050
     Dates: start: 20150217, end: 20150309
  10. DUODOPA [Suspect]
     Active Substance: CARBIDOPA\LEVODOPA
     Dosage: AM: 9ML; CD: 5ML/H FOR 16 HRS; ED: 3ML
     Route: 050
     Dates: start: 20150210, end: 20150212

REACTIONS (13)
  - Device dislocation [Unknown]
  - Wound drainage [Not Recovered/Not Resolved]
  - Nausea [Unknown]
  - Abdominal distension [Unknown]
  - Camptocormia [Recovering/Resolving]
  - Freezing phenomenon [Unknown]
  - Drug ineffective [Unknown]
  - Stoma site infection [Unknown]
  - Pain [Unknown]
  - Anxiety [Unknown]
  - Hyperhidrosis [Unknown]
  - Device occlusion [Not Recovered/Not Resolved]
  - Incorrect route of drug administration [Not Recovered/Not Resolved]

NARRATIVE: CASE EVENT DATE: 20150210
